FAERS Safety Report 7266032-3 (Version None)
Quarter: 2011Q1

REPORT INFORMATION
  Report Type: 
  Country: None (occurrence: None)
  Receive Date: 20110131
  Receipt Date: 20110124
  Transmission Date: 20110831
  Serious: Yes (Other)
  Sender: FDA-Public Use
  Company Number: US-JNJCH-2011000224

PATIENT
  Sex: Male

DRUGS (1)
  1. LISTERINE TOTAL CARE ANTICAVITY MOUTHWASH [Suspect]
     Indication: PRODUCT USED FOR UNKNOWN INDICATION
     Dosage: TEXT:TWO TEASPOONSFUL AS INSTRUCTED
     Route: 048

REACTIONS (5)
  - APPLICATION SITE PAIN [None]
  - MOUTH INJURY [None]
  - ORAL PAIN [None]
  - TONGUE INJURY [None]
  - LIP INJURY [None]
